FAERS Safety Report 5193807-7 (Version None)
Quarter: 2006Q4

REPORT INFORMATION
  Report Type: 
  Country: None (occurrence: None)
  Receive Date: 20061221
  Receipt Date: 20061214
  Transmission Date: 20070319
  Serious: Yes (Other)
  Sender: FDA-Public Use
  Company Number: 3657

PATIENT
  Age: 38 Year
  Sex: Female

DRUGS (1)
  1. AMNESTEEM [Suspect]

REACTIONS (1)
  - BREAST CANCER FEMALE [None]
